FAERS Safety Report 4307083-8 (Version None)
Quarter: 2004Q1

REPORT INFORMATION
  Report Type: 
  Country: None (occurrence: None)
  Receive Date: 20040227
  Receipt Date: 20031218
  Transmission Date: 20041129
  Serious: Yes (Hospitalization)
  Sender: FDA-Public Use
  Company Number: PHBS2003JP14315

PATIENT
  Age: 78 Year
  Sex: Male
  Weight: 65 kg

DRUGS (2)
  1. GLEEVEC [Suspect]
     Indication: GASTROINTESTINAL STROMAL TUMOUR
     Dosage: 300-200 MG/D
     Route: 048
     Dates: start: 20031006, end: 20031120
  2. NU-LOTAN [Concomitant]
     Dosage: 50 MG/D

REACTIONS (7)
  - BLOOD ALBUMIN DECREASED [None]
  - BLOOD CREATININE INCREASED [None]
  - NEPHROTIC SYNDROME [None]
  - OEDEMA [None]
  - PROTEIN TOTAL DECREASED [None]
  - PROTEINURIA [None]
  - SWELLING [None]
